FAERS Safety Report 13931321 (Version 1)
Quarter: 2017Q3

REPORT INFORMATION
  Report Type: Spontaneous
  Country: AR (occurrence: AR)
  Receive Date: 20170903
  Receipt Date: 20170903
  Transmission Date: 20171127
  Serious: Yes (Hospitalization, Other)
  Sender: FDA-Public Use
  Company Number: AR-MYLANLABS-2017M1054291

PATIENT
  Age: 33 Year
  Sex: Male

DRUGS (2)
  1. INDOMETACIN [Suspect]
     Active Substance: INDOMETHACIN
     Indication: INTRACRANIAL PRESSURE INCREASED
     Dosage: LOADING DOSE OF 0.8MG/KG
     Route: 042
  2. INDOMETACIN [Suspect]
     Active Substance: INDOMETHACIN
     Dosage: 0.5MG/KG/HOUR
     Route: 041

REACTIONS (9)
  - Renal impairment [Unknown]
  - Cerebral ischaemia [Unknown]
  - Gingival bleeding [Unknown]
  - Withdrawal syndrome [Unknown]
  - Haematemesis [Unknown]
  - Thrombocytopenia [Unknown]
  - Intracranial pressure increased [Unknown]
  - Disseminated intravascular coagulation [Unknown]
  - Haematuria [Unknown]
